FAERS Safety Report 5466830-2 (Version None)
Quarter: 2007Q3

REPORT INFORMATION
  Report Type: 
  Country: None (occurrence: None)
  Receive Date: 20070917
  Receipt Date: 20070917
  Transmission Date: 20080115
  Serious: Yes (Hospitalization)
  Sender: FDA-Public Use
  Company Number: None

PATIENT
  Age: 56 Year
  Sex: Female
  Weight: 80 kg

DRUGS (7)
  1. BEVACIZUMAB (GENENTECH) [Suspect]
     Indication: GLIOBLASTOMA MULTIFORME
     Dosage: 805MG IV EVERY 2 WEEKS
     Route: 042
     Dates: start: 20070817, end: 20070831
  2. TEMOZOLOMIDE [Suspect]
     Indication: GLIOBLASTOMA MULTIFORME
     Dosage: 90 MG PO DAILY
     Route: 048
     Dates: start: 20070817, end: 20070910
  3. PROTONIX [Concomitant]
  4. SYNTHROID [Concomitant]
  5. ASPIRIN [Concomitant]
  6. KEPPRA [Concomitant]
  7. DECADRON [Concomitant]

REACTIONS (7)
  - ABASIA [None]
  - ABSCESS [None]
  - ASTHENIA [None]
  - CONVULSION [None]
  - DISEASE PROGRESSION [None]
  - FALL [None]
  - PULMONARY MASS [None]
